FAERS Safety Report 7266500-4 (Version None)
Quarter: 2011Q1

REPORT INFORMATION
  Report Type: 
  Country: None (occurrence: None)
  Receive Date: 20110131
  Receipt Date: 20110124
  Transmission Date: 20110831
  Serious: Yes (Hospitalization)
  Sender: FDA-Public Use
  Company Number: US-US-EMD SERONO, INC.-232142J10USA

PATIENT
  Sex: Female

DRUGS (12)
  1. GABAPENTIN [Concomitant]
     Route: 065
  2. REGLAN [Concomitant]
     Indication: DYSPEPSIA
     Route: 065
     Dates: start: 20100201
  3. NEXIUM [Concomitant]
     Indication: DYSPEPSIA
     Route: 065
  4. PRAMIPEXOLE DIHYDROCHLORIDE [Concomitant]
     Route: 065
  5. PREDNISONE [Concomitant]
     Route: 065
  6. BACLOFEN [Concomitant]
     Route: 065
  7. OTHER MEDICATIONS [Concomitant]
     Route: 065
  8. LEVOTHYROXINE SODIUM [Concomitant]
     Route: 065
  9. REBIF [Suspect]
     Indication: MULTIPLE SCLEROSIS
     Route: 058
     Dates: start: 20091208
  10. PROCHLORPERAZINE [Concomitant]
     Route: 065
  11. TRAZODONE HCL [Concomitant]
     Indication: INSOMNIA
     Route: 065
  12. ADVIL [Concomitant]
     Indication: PREMEDICATION
     Route: 065

REACTIONS (3)
  - URINARY TRACT INFECTION [None]
  - MULTIPLE SCLEROSIS RELAPSE [None]
  - BLOOD POTASSIUM DECREASED [None]
